FAERS Safety Report 14507006 (Version 2)
Quarter: 2018Q1

REPORT INFORMATION
  Report Type: Spontaneous
  Country: US (occurrence: US)
  Receive Date: 20180208
  Receipt Date: 20180323
  Transmission Date: 20180509
  Serious: No
  Sender: FDA-Public Use
  Company Number: US-009507513-1802USA003289

PATIENT
  Age: 20 Year
  Sex: Female
  Weight: 81.63 kg

DRUGS (3)
  1. NEXPLANON [Suspect]
     Active Substance: ETONOGESTREL
     Indication: CONTRACEPTION
     Dosage: CONTINUOUS IMPLANT
     Route: 058
     Dates: start: 20180126
  2. NEXPLANON [Suspect]
     Active Substance: ETONOGESTREL
     Dosage: CONTINUOUS IMPLANT
     Route: 058
     Dates: start: 20180126, end: 20180126
  3. NEXPLANON [Suspect]
     Active Substance: ETONOGESTREL
     Dosage: 1 DF, UNK
     Route: 059
     Dates: end: 20180126

REACTIONS (4)
  - Implant site scar [Not Recovered/Not Resolved]
  - Device difficult to use [Recovered/Resolved]
  - Implant site haemorrhage [Unknown]
  - Product quality issue [Unknown]

NARRATIVE: CASE EVENT DATE: 20180126
